FAERS Safety Report 4603276-0 (Version None)
Quarter: 2005Q1

REPORT INFORMATION
  Report Type: 
  Country: None (occurrence: None)
  Receive Date: 20050308
  Receipt Date: 20050223
  Transmission Date: 20050727
  Serious: Yes (Hospitalization)
  Sender: FDA-Public Use
  Company Number: 2005034507

PATIENT
  Age: 87 Year
  Sex: Female

DRUGS (6)
  1. TRANKIMAZIN (ALPRAZOLAM) [Suspect]
     Indication: ILL-DEFINED DISORDER
     Dosage: 1 MG (0.5 MG, DAILY), ORAL
     Route: 048
     Dates: start: 20040108, end: 20040309
  2. DIGOXIN [Concomitant]
  3. FUROSEMIDE [Concomitant]
  4. ENALAPRIL MALEATE [Concomitant]
  5. NITROGLYCERIN [Concomitant]
  6. PANTOPRAZOLE (PANTOPRAZOLE) [Concomitant]

REACTIONS (9)
  - APHASIA [None]
  - ASTHENIA [None]
  - CONFUSIONAL STATE [None]
  - DYSPHAGIA [None]
  - DYSPNOEA [None]
  - HEADACHE [None]
  - MALAISE [None]
  - URINARY INCONTINENCE [None]
  - VOMITING [None]
